FAERS Safety Report 16740040 (Version 2)
Quarter: 2019Q3

REPORT INFORMATION
  Report Type: Report from Study
  Country: US (occurrence: US)
  Receive Date: 20190826
  Receipt Date: 20190925
  Transmission Date: 20191005
  Serious: Yes (Other)
  Sender: FDA-Public Use
  Company Number: PHEH2019US035259

PATIENT
  Sex: Male

DRUGS (1)
  1. TASIGNA [Suspect]
     Active Substance: NILOTINIB
     Indication: PRODUCT USED FOR UNKNOWN INDICATION
     Route: 065

REACTIONS (11)
  - Constipation [Recovering/Resolving]
  - White blood cell count decreased [Unknown]
  - Myalgia [Recovering/Resolving]
  - Leukaemia [Unknown]
  - Diarrhoea [Unknown]
  - Sitting disability [Recovering/Resolving]
  - Abdominal discomfort [Not Recovered/Not Resolved]
  - Pain [Recovering/Resolving]
  - Decreased appetite [Recovering/Resolving]
  - Insomnia [Recovering/Resolving]
  - Malaise [Recovered/Resolved]
